FAERS Safety Report 16986338 (Version 5)
Quarter: 2021Q2

REPORT INFORMATION
  Report Type: Report from Study
  Country: US (occurrence: US)
  Receive Date: 20191101
  Receipt Date: 20210428
  Transmission Date: 20210716
  Serious: Yes (Life-Threatening, Other)
  Sender: FDA-Public Use
  Company Number: US-SHIRE-US201937206

PATIENT
  Age: 54 Year
  Sex: Female
  Weight: 91.52 kg

DRUGS (11)
  1. PARATHYROID HORMONE [Suspect]
     Active Substance: PARATHYROID HORMONE
     Dosage: 50 MILLIGRAM, QD
     Route: 065
     Dates: start: 201904, end: 201911
  2. PARATHYROID HORMONE [Suspect]
     Active Substance: PARATHYROID HORMONE
     Dosage: 50 MILLIGRAM, QD
     Route: 065
     Dates: start: 201904, end: 201911
  3. PARATHYROID HORMONE [Suspect]
     Active Substance: PARATHYROID HORMONE
     Indication: CONGENITAL HYPOPARATHYROIDISM
     Dosage: 50 MILLIGRAM
     Route: 058
     Dates: start: 201802
  4. PARATHYROID HORMONE [Suspect]
     Active Substance: PARATHYROID HORMONE
     Dosage: 75 MILLIGRAM, QD
     Route: 065
     Dates: start: 20210423
  5. PARATHYROID HORMONE [Suspect]
     Active Substance: PARATHYROID HORMONE
     Indication: CONGENITAL HYPOPARATHYROIDISM
     Dosage: 50 MILLIGRAM
     Route: 058
     Dates: start: 201802
  6. PARATHYROID HORMONE [Suspect]
     Active Substance: PARATHYROID HORMONE
     Dosage: 75 MILLIGRAM, QD
     Route: 065
     Dates: start: 20210423
  7. OSCAL [Concomitant]
     Active Substance: CALCIUM CARBONATE
     Indication: PRODUCT USED FOR UNKNOWN INDICATION
     Dosage: UNK
     Route: 065
  8. PARATHYROID HORMONE [Suspect]
     Active Substance: PARATHYROID HORMONE
     Dosage: 50 MILLIGRAM, QD
     Route: 065
     Dates: start: 201904, end: 201911
  9. PARATHYROID HORMONE [Suspect]
     Active Substance: PARATHYROID HORMONE
     Dosage: 75 MILLIGRAM, QD
     Route: 065
     Dates: start: 20210423
  10. CALCITRIOL. [Concomitant]
     Active Substance: CALCITRIOL
     Indication: PRODUCT USED FOR UNKNOWN INDICATION
     Dosage: 0.75 MICROGRAM, QD
     Route: 065
  11. PARATHYROID HORMONE [Suspect]
     Active Substance: PARATHYROID HORMONE
     Indication: CONGENITAL HYPOPARATHYROIDISM
     Dosage: 50 MILLIGRAM
     Route: 058
     Dates: start: 201802

REACTIONS (6)
  - Malaise [Unknown]
  - Constipation [Unknown]
  - Hypocalcaemia [Unknown]
  - Recalled product [Recovered/Resolved with Sequelae]
  - Renal failure [Unknown]
  - Muscle spasms [Unknown]

NARRATIVE: CASE EVENT DATE: 202001
